FAERS Safety Report 23686417 (Version 1)
Quarter: 2024Q1

REPORT INFORMATION
  Report Type: Spontaneous
  Country: US (occurrence: US)
  Receive Date: 20240329
  Receipt Date: 20240329
  Transmission Date: 20240409
  Serious: No
  Sender: FDA-Public Use
  Company Number: US-BAYER-2024A045368

PATIENT
  Age: 66 Year
  Sex: Female

DRUGS (3)
  1. ALEVE [Suspect]
     Active Substance: NAPROXEN SODIUM
  2. KETOTIFEN FUMARATE [Concomitant]
     Active Substance: KETOTIFEN FUMARATE
  3. XOLAIR [Concomitant]
     Active Substance: OMALIZUMAB
     Dosage: UNK

REACTIONS (1)
  - Drug ineffective [None]
